FAERS Safety Report 16648290 (Version 1)
Quarter: 2019Q3

REPORT INFORMATION
  Report Type: Spontaneous
  Country: US (occurrence: US)
  Receive Date: 20190730
  Receipt Date: 20190730
  Transmission Date: 20191004
  Serious: Yes (Other)
  Sender: FDA-Public Use
  Company Number: US-SA-2019SA204081

PATIENT
  Sex: Male

DRUGS (1)
  1. LANTUS [Suspect]
     Active Substance: INSULIN GLARGINE
     Dosage: UNK UNK, UNK
     Route: 065

REACTIONS (6)
  - Swollen tongue [Unknown]
  - Dyspnoea [Unknown]
  - Joint swelling [Unknown]
  - Anaphylactic reaction [Unknown]
  - Dysarthria [Not Recovered/Not Resolved]
  - Unevaluable event [Unknown]
